FAERS Safety Report 8764778 (Version 1)
Quarter: 2012Q4

REPORT INFORMATION
  Report Type: 
  Country: CN (occurrence: CN)
  Receive Date: 20120831
  Receipt Date: 20120831
  Transmission Date: 20130627
  Serious: Yes (Other)
  Sender: FDA-Public Use
  Company Number: CN-ROCHE-CID000000002129081

PATIENT
  Age: 52 Year
  Sex: Male
  Weight: 69 kg

DRUGS (15)
  1. CEFTRIAXONE [Suspect]
     Indication: INFECTION
     Route: 041
     Dates: start: 20110517, end: 20110519
  2. MEZLOCILLIN SODIUM [Suspect]
     Indication: INFECTION
     Route: 041
     Dates: start: 20110513, end: 20110517
  3. CEFOPERAZONE SODIUM/SULBACTAM SODIUM [Suspect]
     Indication: INFECTION
     Route: 041
     Dates: start: 20110519, end: 20110527
  4. OXACILLIN SODIUM [Suspect]
     Indication: INFECTION
     Route: 041
     Dates: start: 20110519, end: 20110522
  5. SULBACTAM SODIUM [Suspect]
     Indication: INFECTION
     Route: 041
     Dates: start: 20110513, end: 20110517
  6. PROMETHAZINE [Concomitant]
     Dates: start: 20110513, end: 20110515
  7. CINEPAZIDE [Concomitant]
     Dates: start: 20110513, end: 20110515
  8. OMEPRAZOLE [Concomitant]
     Dates: start: 20110513, end: 20110515
  9. OMEPRAZOLE [Concomitant]
     Dates: start: 20110515
  10. ASPIRIN [Concomitant]
     Dates: start: 20110513, end: 20110515
  11. ATORVASTATIN [Concomitant]
     Dates: start: 20110513, end: 20110515
  12. AMBROXOL [Concomitant]
     Dates: start: 20110513
  13. MANNITOL [Concomitant]
     Dates: start: 20110515
  14. FUROSEMIDE [Concomitant]
     Dates: start: 20110515
  15. FRUCTOSE/GLYCERIN [Concomitant]
     Dates: start: 20110515

REACTIONS (5)
  - Fungal infection [Recovered/Resolved]
  - Hydrocephalus [Unknown]
  - Coma [Unknown]
  - Liver injury [Unknown]
  - Nerve injury [Unknown]
